FAERS Safety Report 13435630 (Version 1)
Quarter: 2017Q2

REPORT INFORMATION
  Report Type: Spontaneous
  Country: US (occurrence: US)
  Receive Date: 20170412
  Receipt Date: 20170412
  Transmission Date: 20170830
  Serious: Yes (Hospitalization)
  Sender: FDA-Public Use
  Company Number: None

PATIENT
  Age: 22 Year
  Sex: Male
  Weight: 57.9 kg

DRUGS (17)
  1. ALBUTEROL. [Concomitant]
     Active Substance: ALBUTEROL
  2. SOLUTION RESPIRATORY [Concomitant]
  3. MULTIVITAMIN [Concomitant]
     Active Substance: VITAMINS
  4. XOLAIR [Concomitant]
     Active Substance: OMALIZUMAB
  5. AEROSOL RESPIRATORY [Concomitant]
  6. AZITHROMYCIN ANHYDROUS. [Concomitant]
     Active Substance: AZITHROMYCIN ANHYDROUS
  7. CHOLECALCIFEROL [Concomitant]
     Active Substance: CHOLECALCIFEROL
  8. COLISTIMETHATE [Concomitant]
     Active Substance: COLISTIMETHATE SODIUM
  9. GLUCAGON. [Concomitant]
     Active Substance: GLUCAGON
  10. LIPASE-PROTEASE-AMYLASE [Concomitant]
  11. POSACONAZOLE [Concomitant]
     Active Substance: POSACONAZOLE
  12. MOMTASONE-FORMOTEROL [Concomitant]
  13. TOBRAMYCIN. [Concomitant]
     Active Substance: TOBRAMYCIN
  14. CLOFAZIMINE [Concomitant]
     Active Substance: CLOFAZIMINE
  15. VITAMIN D3 [Concomitant]
     Active Substance: CHOLECALCIFEROL
  16. DORNASE ALPHA [Concomitant]
  17. LIPOSOMAL AMIKACIN (LAI) [Suspect]
     Active Substance: AMIKACIN
     Indication: PRODUCT USED FOR UNKNOWN INDICATION
     Route: 055
     Dates: start: 20170206

REACTIONS (4)
  - Infective pulmonary exacerbation of cystic fibrosis [None]
  - Cough [None]
  - Pulmonary function test decreased [None]
  - Sputum increased [None]

NARRATIVE: CASE EVENT DATE: 20170327
